FAERS Safety Report 8118304-8 (Version None)
Quarter: 2012Q1

REPORT INFORMATION
  Report Type: 
  Country: None (occurrence: None)
  Receive Date: 20120207
  Receipt Date: 20120131
  Transmission Date: 20120608
  Serious: Yes (Other)
  Sender: FDA-Public Use
  Company Number: US-JNJFOC-20120200653

PATIENT
  Sex: Female
  Weight: 97.52 kg

DRUGS (9)
  1. GEN-CYCLOBENZAPRINE [Concomitant]
     Indication: PAIN
     Route: 065
     Dates: start: 20020101
  2. ESTRADIOL [Concomitant]
     Indication: HORMONE REPLACEMENT THERAPY
     Route: 065
     Dates: start: 20000101
  3. TOPAMAX [Suspect]
     Indication: SCIATICA
     Dosage: 50 MG + 50 MG IN 24 HOURS
     Route: 048
     Dates: start: 20100101
  4. XANAX [Concomitant]
     Indication: ANXIETY
     Route: 065
     Dates: start: 20020101
  5. STOOL SOFTENER [Concomitant]
     Indication: PRODUCT USED FOR UNKNOWN INDICATION
     Route: 065
     Dates: start: 20020101
  6. TOPAMAX [Suspect]
     Indication: FIBROMYALGIA
     Dosage: 50 MG + 50 MG IN 24 HOURS
     Route: 048
     Dates: start: 20100101
  7. TRAMADOL HCL [Concomitant]
     Indication: PAIN
     Route: 065
     Dates: start: 20020101
  8. LORTAB [Concomitant]
     Indication: PAIN
     Route: 065
     Dates: start: 20020101
  9. NEXIUM [Concomitant]
     Route: 048
     Dates: start: 20020101

REACTIONS (3)
  - WEIGHT DECREASED [None]
  - BRONCHITIS CHRONIC [None]
  - CATARACT [None]
